FAERS Safety Report 23442567 (Version 1)
Quarter: 2024Q1

REPORT INFORMATION
  Report Type: Spontaneous
  Country: US (occurrence: US)
  Receive Date: 20240125
  Receipt Date: 20240125
  Transmission Date: 20240410
  Serious: Yes (Death)
  Sender: FDA-Public Use
  Company Number: US-GTI-000119

PATIENT
  Sex: Male

DRUGS (14)
  1. PREDNISONE [Suspect]
     Active Substance: PREDNISONE
     Indication: Pulmonary sarcoidosis
     Route: 065
  2. PREDNISONE [Suspect]
     Active Substance: PREDNISONE
     Indication: Pulmonary sarcoidosis
     Route: 065
  3. CEFTRIAXONE [Suspect]
     Active Substance: CEFTRIAXONE\CEFTRIAXONE SODIUM
     Indication: Cellulitis
     Route: 065
  4. CEFTRIAXONE [Suspect]
     Active Substance: CEFTRIAXONE\CEFTRIAXONE SODIUM
     Indication: Pneumonia
     Route: 065
  5. LINEZOLID [Suspect]
     Active Substance: LINEZOLID
     Indication: Pneumonia
     Route: 065
  6. LINEZOLID [Suspect]
     Active Substance: LINEZOLID
     Indication: Cellulitis
     Route: 065
  7. IMIPENEM [Suspect]
     Active Substance: IMIPENEM
     Indication: Cellulitis
     Route: 065
  8. IMIPENEM [Suspect]
     Active Substance: IMIPENEM
     Indication: Pneumonia
     Route: 065
  9. IMIPENEM [Suspect]
     Active Substance: IMIPENEM
     Indication: Brain abscess
     Route: 065
  10. SULFAMETHOXAZOLE AND TRIMETHOPRIM [Suspect]
     Active Substance: SULFAMETHOXAZOLE\TRIMETHOPRIM
     Indication: Pneumonia
     Route: 065
  11. SULFAMETHOXAZOLE AND TRIMETHOPRIM [Suspect]
     Active Substance: SULFAMETHOXAZOLE\TRIMETHOPRIM
     Indication: Cellulitis
     Route: 065
  12. MEROPENEM [Suspect]
     Active Substance: MEROPENEM
     Indication: Brain abscess
     Route: 065
  13. TEDIZOLID [Suspect]
     Active Substance: TEDIZOLID
     Indication: Cellulitis
     Route: 065
  14. TEDIZOLID [Suspect]
     Active Substance: TEDIZOLID
     Indication: Pneumonia
     Route: 065

REACTIONS (14)
  - Pulmonary nocardiosis [Fatal]
  - Dyspnoea [Unknown]
  - Cellulitis [Unknown]
  - Hypoxia [Unknown]
  - Pneumonia [Unknown]
  - Pulmonary mass [Unknown]
  - Acute kidney injury [Unknown]
  - Pancytopenia [Unknown]
  - Brain abscess [Unknown]
  - Pleural effusion [Unknown]
  - Aphasia [Unknown]
  - Hallucination [Unknown]
  - Confusional state [Unknown]
  - Treatment failure [Unknown]
